FAERS Safety Report 4745413-3 (Version None)
Quarter: 2005Q3

REPORT INFORMATION
  Report Type: 
  Country: None (occurrence: None)
  Receive Date: 20050815
  Receipt Date: 20050809
  Transmission Date: 20060218
  Serious: Yes (Hospitalization)
  Sender: FDA-Public Use
  Company Number: 2005-BP-08248BP

PATIENT
  Age: 40 Year
  Sex: Male
  Weight: 51.9 kg

DRUGS (28)
  1. TIPRANAVIR / RITONAVIR CAPSULES [Suspect]
     Indication: HIV INFECTION
     Dosage: TPV/R 1000/400MG (SEE TEXT, STRENGTH 250/100 MG), PO
     Route: 048
     Dates: start: 20040809
  2. MORPHINE ERT (MORPHINE) [Concomitant]
     Indication: PAIN
     Dosage: 260 MG (120 MG, 3 IN 1 D),PO
     Route: 048
     Dates: start: 20050209
  3. MORPHINE [Suspect]
     Indication: PAIN
     Dosage: 180 MG (15 MG, 1-2 TAB EVERY 4 HRS PO AS NEEDED), PO
     Route: 048
     Dates: start: 20050209
  4. COMBIVIR [Concomitant]
  5. DIDANOSINE [Concomitant]
  6. ENFUVIRTIDE (ENFUVIRTIDE) [Concomitant]
  7. AMMONIUM LACTATE [Concomitant]
  8. AZITHROMYCIN [Concomitant]
  9. CITALOPRAM (CITRALOPRAM HYDROBROMIDE) [Concomitant]
  10. CALCIPOTRIENE CREAM [Concomitant]
  11. CYCLOBENZAPRINE HCL [Concomitant]
  12. DAPSONE [Concomitant]
  13. DOLASETRON (DOLASETRON) [Concomitant]
  14. DRONABINOL [Concomitant]
  15. FILAGASTRIM [Concomitant]
  16. FLUCONAZOLE [Concomitant]
  17. FOLIC ACID [Concomitant]
  18. LASIX [Concomitant]
  19. NEURONTIN [Concomitant]
  20. GANCICLOVIR SODIUM [Concomitant]
  21. HALOBETASOL PROPIONATE [Concomitant]
  22. LORTADINE [Concomitant]
  23. LORAZEPAM [Concomitant]
  24. OCTREOTIDE (OCTREDOTIDE) [Concomitant]
  25. TINCTURE OF OPIUM [Concomitant]
  26. PANTROPRAZOLE (PANTOPRAZOLE) [Concomitant]
  27. TRIAMCINOLONE CREAM [Concomitant]
  28. ZOLPIDEM TARTRATE [Concomitant]

REACTIONS (13)
  - ALANINE AMINOTRANSFERASE INCREASED [None]
  - ASPARTATE AMINOTRANSFERASE INCREASED [None]
  - BLOOD ALKALINE PHOSPHATASE INCREASED [None]
  - BLOOD CHLORIDE DECREASED [None]
  - BLOOD POTASSIUM DECREASED [None]
  - BLOOD SODIUM DECREASED [None]
  - CARBON DIOXIDE DECREASED [None]
  - GAMMA-GLUTAMYLTRANSFERASE INCREASED [None]
  - GASTRIC DILATATION [None]
  - HAEMATOCRIT DECREASED [None]
  - HAEMOGLOBIN DECREASED [None]
  - ILEUS [None]
  - LIPASE INCREASED [None]
